FAERS Safety Report 5187747-7 (Version None)
Quarter: 2007Q1

REPORT INFORMATION
  Report Type: 
  Country: None (occurrence: None)
  Receive Date: 20061214
  Receipt Date: 20061204
  Transmission Date: 20070707
  Serious: Yes (Hospitalization)
  Sender: FDA-Public Use
  Company Number: 233368

PATIENT
  Age: 60 Year
  Sex: Female

DRUGS (11)
  1. AVASTIN [Suspect]
     Indication: BREAST CANCER
     Dates: start: 20060913, end: 20061122
  2. PACLITAXEL [Suspect]
     Indication: BREAST CANCER
     Dates: start: 20060913, end: 20061122
  3. CYCLOPHOSPHAMIDE [Suspect]
     Indication: BREAST CANCER
     Dates: start: 20060913, end: 20061122
  4. DOXORUBICIN HCL [Suspect]
     Indication: BREAST CANCER
     Dates: start: 20060913, end: 20061122
  5. APREPITANT [Concomitant]
  6. ATORVASTATIN CALCIUM [Concomitant]
  7. DEXAMETHASONE [Concomitant]
  8. LORAZEPAM [Concomitant]
  9. METOCLOPRAMIDE [Concomitant]
  10. PEGFILGRASTIM [Concomitant]
  11. SERTRALINE [Concomitant]

REACTIONS (3)
  - DIZZINESS [None]
  - PRESYNCOPE [None]
  - SUPRAVENTRICULAR TACHYCARDIA [None]
